FAERS Safety Report 17399507 (Version 1)
Quarter: 2020Q1

REPORT INFORMATION
  Report Type: Report from Study
  Country: US (occurrence: US)
  Receive Date: 20200211
  Receipt Date: 20200211
  Transmission Date: 20200409
  Serious: Yes (Other)
  Sender: FDA-Public Use
  Company Number: US-ROCHE-2512971

PATIENT
  Age: 81 Year
  Sex: Male

DRUGS (2)
  1. AVASTIN [Suspect]
     Active Substance: BEVACIZUMAB
     Indication: NEOVASCULAR AGE-RELATED MACULAR DEGENERATION
     Route: 050
     Dates: start: 20190815, end: 20190923
  2. PRED FORTE [Concomitant]
     Active Substance: PREDNISOLONE ACETATE
     Route: 065
     Dates: start: 20190819, end: 20190917

REACTIONS (5)
  - Intentional product use issue [Unknown]
  - Drug hypersensitivity [Unknown]
  - Off label use [Unknown]
  - Endophthalmitis [Recovered/Resolved]
  - Inflammation [Recovered/Resolved]

NARRATIVE: CASE EVENT DATE: 20190817
